FAERS Safety Report 7597391-X (Version None)
Quarter: 2011Q3

REPORT INFORMATION
  Report Type: 
  Country: None (occurrence: None)
  Receive Date: 20110708
  Receipt Date: 20110624
  Transmission Date: 20111222
  Serious: Yes (Other)
  Sender: FDA-Public Use
  Company Number: PHHY2011BR56666

PATIENT
  Sex: Female

DRUGS (1)
  1. DIOVAN HCT [Suspect]
     Dosage: 80 MG VALSARTAN/12.5 MG HYDROCHLOROTHIAZIDE

REACTIONS (2)
  - CARDIAC DISORDER [None]
  - SPINAL DISORDER [None]
